FAERS Safety Report 20520816 (Version 9)
Quarter: 2022Q2

REPORT INFORMATION
  Report Type: Spontaneous
  Country: US (occurrence: US)
  Receive Date: 20220225
  Receipt Date: 20220627
  Transmission Date: 20220720
  Serious: No
  Sender: FDA-Public Use
  Company Number: US-PFIZER INC-202200258892

PATIENT
  Age: 60 Year
  Sex: Female

DRUGS (7)
  1. IBRANCE [Suspect]
     Active Substance: PALBOCICLIB
     Dosage: 100 MG, CYCLIC
     Dates: start: 20210209
  2. IBRANCE [Suspect]
     Active Substance: PALBOCICLIB
     Dosage: 125 MG
     Dates: start: 20220119
  3. IBRANCE [Suspect]
     Active Substance: PALBOCICLIB
     Dosage: 125 MG, CYCLIC
     Dates: start: 20220212
  4. IBRANCE [Suspect]
     Active Substance: PALBOCICLIB
     Dosage: 100 MG
     Dates: start: 20220225, end: 20220318
  5. IBRANCE [Suspect]
     Active Substance: PALBOCICLIB
     Dosage: 75 MG, CYCLIC (FOR 3 WEEKS THEN STOPPING FOR 2 WEEKS)
     Dates: start: 20220401
  6. IBRANCE [Suspect]
     Active Substance: PALBOCICLIB
     Dosage: 75 MG, (SHE WILL BE TAKING 2 WEEKS ON AND 2 WEEKS OFF VS THE 3WEEKS ON 1 WEEK OFF)
  7. IBRANCE [Suspect]
     Active Substance: PALBOCICLIB
     Dosage: UNK, CYCLIC (14 DAYS ON AND 14 DAYS OFF )

REACTIONS (13)
  - Off label use [Unknown]
  - Somnolence [Recovering/Resolving]
  - White blood cell count decreased [Not Recovered/Not Resolved]
  - Headache [Recovering/Resolving]
  - Nasopharyngitis [Unknown]
  - Nasal dryness [Unknown]
  - Epistaxis [Unknown]
  - Arthralgia [Unknown]
  - Osteoarthritis [Unknown]
  - Fatigue [Unknown]
  - Neutrophil count decreased [Unknown]
  - Laboratory test abnormal [Unknown]
  - White blood cell count increased [Unknown]

NARRATIVE: CASE EVENT DATE: 20220314
